APPROVED DRUG PRODUCT: GLYBURIDE AND METFORMIN HYDROCHLORIDE
Active Ingredient: GLYBURIDE; METFORMIN HYDROCHLORIDE
Strength: 2.5MG;500MG
Dosage Form/Route: TABLET;ORAL
Application: A206748 | Product #002 | TE Code: AB
Applicant: ZYDUS PHARMACEUTICALS USA INC
Approved: Feb 29, 2016 | RLD: No | RS: No | Type: RX